FAERS Safety Report 19486108 (Version 1)
Quarter: 2021Q3

REPORT INFORMATION
  Report Type: Spontaneous
  Country: US (occurrence: US)
  Receive Date: 20210702
  Receipt Date: 20210702
  Transmission Date: 20211014
  Serious: Yes (Other)
  Sender: FDA-Public Use
  Company Number: US-PFIZER INC-2021751242

PATIENT
  Age: 68 Year
  Sex: Male
  Weight: 94.8 kg

DRUGS (2)
  1. CITALOPRAM [Suspect]
     Active Substance: CITALOPRAM HYDROBROMIDE
     Dosage: UNK
     Dates: end: 2021
  2. VYNDAMAX [Suspect]
     Active Substance: TAFAMIDIS
     Indication: AMYLOIDOSIS
     Dosage: 61 MG, 1X/DAY
     Route: 048
     Dates: start: 2020

REACTIONS (4)
  - Diarrhoea [Recovering/Resolving]
  - Off label use [Unknown]
  - Faeces soft [Unknown]
  - Flatulence [Unknown]

NARRATIVE: CASE EVENT DATE: 2020
